FAERS Safety Report 21580019 (Version 2)
Quarter: 2022Q4

REPORT INFORMATION
  Report Type: Spontaneous
  Country: IT (occurrence: IT)
  Receive Date: 20221110
  Receipt Date: 20221118
  Transmission Date: 20230113
  Serious: Yes (Death, Other)
  Sender: FDA-Public Use
  Company Number: IT-GILEAD-2022-0604650

PATIENT
  Age: 62 Year
  Sex: Female

DRUGS (18)
  1. TRODELVY [Suspect]
     Active Substance: SACITUZUMAB GOVITECAN-HZIY
     Indication: Triple negative breast cancer
     Dosage: 10 MG/KG, 1.8 Q21
     Route: 042
     Dates: start: 20221012, end: 20221019
  2. GRANULOCYTE COLONY-STIMULATING FACTOR NOS [Concomitant]
     Active Substance: GRANULOCYTE COLONY-STIMULATING FACTOR NOS
     Indication: Prophylaxis
     Dosage: UNK, 1ST INJ. DAY AFTER INFUSION OF TRODELVY X3 DAYS
  3. BEVACIZUMAB [Concomitant]
     Active Substance: BEVACIZUMAB
     Dosage: UNK
     Dates: start: 20170116
  4. DOXORUBICIN HYDROCHLORIDE [Concomitant]
     Active Substance: DOXORUBICIN HYDROCHLORIDE
     Dosage: UNK, BID
     Dates: start: 201806, end: 20190527
  5. MEDROL [Concomitant]
     Active Substance: METHYLPREDNISOLONE
     Dosage: 120 MG
  6. MEDROL [Concomitant]
     Active Substance: METHYLPREDNISOLONE
     Dosage: 16 MG 1 TABLET PER DAY ON A FULL STOMACH
  7. CLODRONATE DISODIUM [Concomitant]
     Active Substance: CLODRONATE DISODIUM
     Dosage: 200
  8. BASIC [Concomitant]
     Dosage: 25,000 UI
  9. DICLOFENAC [Concomitant]
     Active Substance: DICLOFENAC
     Dosage: 150 MG
  10. DIETARY SUPPLEMENT\HERBALS\MILK THISTLE [Concomitant]
     Active Substance: DIETARY SUPPLEMENT\HERBALS\MILK THISTLE
     Dosage: 140 MG
  11. PANTOPRAZOLE [Concomitant]
     Active Substance: PANTOPRAZOLE
     Dosage: 40 MG
  12. LEVOTHYROXINE SODIUM [Concomitant]
     Active Substance: LEVOTHYROXINE SODIUM
     Dosage: 125 MCG FOR 45 DAYS A WEEK AND 150 MCG TWICE A WEEK
  13. PANTOPRAZOLE SODIUM [Concomitant]
     Active Substance: PANTOPRAZOLE SODIUM
     Dosage: 20 MG MORNING AND EVENING
  14. LEVOTHYROXINE SODIUM [Concomitant]
     Active Substance: LEVOTHYROXINE SODIUM
     Dosage: 125 MCG PER DAY AND 150 MCG TWICE A WEEK
  15. ONDANSETRON [Concomitant]
     Active Substance: ONDANSETRON
     Dosage: 4 MG 1 TABLET BEFORE BREAKFAST FOR 3 DAYS FOLLOWING CHEMOTHERAPY
  16. PRISMA [CITALOPRAM HYDROBROMIDE] [Concomitant]
     Dosage: 50 MG
  17. HEPARIN [Concomitant]
     Active Substance: HEPARIN SODIUM
     Dosage: 1 FL SUBCUTANEOUSLY PER DAY
  18. FILGRASTIM [Concomitant]
     Active Substance: FILGRASTIM
     Dosage: 30 MG 1 VIAL SUBCUTANEOUSLY FOR DAYS FOLLOWING CHEMOTHERAPY

REACTIONS (5)
  - Death [Fatal]
  - Multiple organ dysfunction syndrome [Unknown]
  - Sepsis [Unknown]
  - Pyrexia [Unknown]
  - Febrile neutropenia [Unknown]

NARRATIVE: CASE EVENT DATE: 20221023
